FAERS Safety Report 16436429 (Version 1)
Quarter: 2019Q2

REPORT INFORMATION
  Report Type: Spontaneous
  Country: US (occurrence: US)
  Receive Date: 20190614
  Receipt Date: 20190614
  Transmission Date: 20190711
  Serious: No
  Sender: FDA-Public Use
  Company Number: US-JNJFOC-20170114803

PATIENT
  Sex: Male

DRUGS (5)
  1. FEXOFENADINE W/PSEUDOEPHEDRINE HYDROCHLORIDE [Concomitant]
     Indication: SNEEZING
     Route: 048
     Dates: start: 20170105
  2. FEXOFENADINE W/PSEUDOEPHEDRINE HYDROCHLORIDE [Concomitant]
     Indication: RHINORRHOEA
     Route: 048
     Dates: start: 20170105
  3. TYLENOL [Suspect]
     Active Substance: ACETAMINOPHEN
     Indication: HEADACHE
     Route: 048
  4. TYLENOL [Suspect]
     Active Substance: ACETAMINOPHEN
     Route: 048
  5. AMLODIPINE [Concomitant]
     Active Substance: AMLODIPINE BESYLATE
     Indication: PRODUCT USED FOR UNKNOWN INDICATION
     Route: 065

REACTIONS (1)
  - Drug ineffective [Unknown]
